FAERS Safety Report 9989504 (Version 2)
Quarter: 2014Q1

REPORT INFORMATION
  Report Type: Report from Study
  Country: US (occurrence: US)
  Receive Date: 20140310
  Receipt Date: 20140310
  Transmission Date: 20141002
  Serious: No
  Sender: FDA-Public Use
  Company Number: US-ABBVIE-13P-163-1080364-00

PATIENT
  Age: 31 Year
  Sex: Female

DRUGS (19)
  1. HUMIRA [Suspect]
     Indication: CROHN^S DISEASE
     Dates: start: 2010
  2. GABAPENTIN [Concomitant]
     Indication: PLANTAR FASCIITIS
  3. GABAPENTIN [Concomitant]
     Indication: NEUROPATHY PERIPHERAL
  4. LEXAPRO [Concomitant]
     Indication: DEPRESSION
     Dosage: 10 MG DAILY
  5. AMITRIPTYLINE [Concomitant]
     Indication: INSOMNIA
     Dosage: 25 MG DAILY AT BEDTIME
  6. 6-MP [Concomitant]
     Indication: CROHN^S DISEASE
     Dosage: 50 MG DAILY
  7. ROBINUL [Concomitant]
     Indication: IMPAIRED GASTRIC EMPTYING
  8. ROBINUL [Concomitant]
     Indication: GASTROOESOPHAGEAL REFLUX DISEASE
  9. PROPRANOLOL [Concomitant]
     Indication: HYPERTENSION
  10. ROBAXIN [Concomitant]
     Indication: MUSCLE RELAXANT THERAPY
     Dosage: 4 TIMES A DAY OR AS REQUIRED
  11. ROBAXIN [Concomitant]
     Indication: NECK PAIN
  12. ROBAXIN [Concomitant]
     Indication: MUSCULOSKELETAL PAIN
  13. QUESTRAN [Concomitant]
     Indication: SHORT-BOWEL SYNDROME
     Dosage: 4 GM IN 8 OZ OF WATER DAILY
  14. MAGNESIUM OXIDE [Concomitant]
     Indication: NUTRITIONAL SUPPLEMENTATION
  15. IMITREX [Concomitant]
     Indication: MIGRAINE
     Dosage: AS REQUIRED - UP TO 2 DOSES
  16. FOLIC ACID [Concomitant]
     Indication: VITAMIN SUPPLEMENTATION
  17. CARAFATE [Concomitant]
     Indication: CROHN^S DISEASE
  18. TRAMADOL [Concomitant]
     Indication: ABDOMINAL PAIN
     Dosage: QID AS NEEDED
  19. HYDROXYZINE [Concomitant]
     Indication: DRUG EFFECT INCREASED
     Dosage: TID AS NEEDED

REACTIONS (2)
  - Staphylococcal infection [Not Recovered/Not Resolved]
  - Herpes zoster [Recovered/Resolved]
